FAERS Safety Report 4543730-3 (Version None)
Quarter: 2004Q4

REPORT INFORMATION
  Report Type: 
  Country: None (occurrence: None)
  Receive Date: 20041229
  Receipt Date: 20041229
  Transmission Date: 20050328
  Serious: Yes (Life-Threatening, Hospitalization)
  Sender: FDA-Public Use
  Company Number: None

PATIENT
  Age: 89 Year
  Sex: Female
  Weight: 40 kg

DRUGS (15)
  1. LISINOPRIL [Suspect]
     Indication: CARDIOMYOPATHY
     Dosage: 5 MG DAILY
     Dates: start: 20040909, end: 20041028
  2. LISINOPRIL [Suspect]
     Indication: CORONARY ARTERY DISEASE
     Dosage: 5 MG DAILY
     Dates: start: 20040909, end: 20041028
  3. LEVOFLOXACIN [Suspect]
     Indication: RESPIRATORY TRACT CONGESTION
     Dates: start: 20041024, end: 20041028
  4. MIACALCIN [Concomitant]
  5. PLAVIX [Concomitant]
  6. PHENYTOIN [Concomitant]
  7. OMEPRAZOLE [Concomitant]
  8. DIGOXIN [Concomitant]
  9. LASIX [Concomitant]
  10. AMBIEN [Concomitant]
  11. NAMENDA [Concomitant]
  12. SINGULAIR [Concomitant]
  13. SYNTHROID [Concomitant]
  14. ADVAIR DISKUS 100/50 [Concomitant]
  15. ASPIRIN [Concomitant]

REACTIONS (3)
  - ANGIONEUROTIC OEDEMA [None]
  - BLOOD PRESSURE INCREASED [None]
  - RESPIRATORY RATE INCREASED [None]
